FAERS Safety Report 13917763 (Version 2)
Quarter: 2017Q3

REPORT INFORMATION
  Report Type: Report from Study
  Country: None (occurrence: AU)
  Receive Date: 20170829
  Receipt Date: 20170913
  Transmission Date: 20171127
  Serious: Yes (Hospitalization)
  Sender: FDA-Public Use
  Company Number: AU-ABBVIE-17P-008-2084879-00

PATIENT
  Age: 53 Year
  Sex: Male
  Weight: 72 kg

DRUGS (2)
  1. DICLOFENAC [Concomitant]
     Active Substance: DICLOFENAC
     Indication: PRODUCT USED FOR UNKNOWN INDICATION
  2. VIEKIRA PAK [Suspect]
     Active Substance: DASABUVIR\OMBITASVIR\PARITAPREVIR\RITONAVIR
     Indication: HEPATITIS C
     Route: 048
     Dates: start: 20170523

REACTIONS (6)
  - Nasopharyngitis [Not Recovered/Not Resolved]
  - Fluid overload [Recovered/Resolved]
  - Cardiac valve disease [Unknown]
  - Cardiac failure [Unknown]
  - Dyspnoea [Recovered/Resolved]
  - Lethargy [Not Recovered/Not Resolved]
